FAERS Safety Report 9199366 (Version 2)
Quarter: 2013Q2

REPORT INFORMATION
  Report Type: Spontaneous
  Country: US (occurrence: US)
  Receive Date: 20130329
  Receipt Date: 20130412
  Transmission Date: 20140414
  Serious: No
  Sender: FDA-Public Use
  Company Number: US-009507513-1303USA010823

PATIENT
  Age: 34 Year
  Sex: Female

DRUGS (2)
  1. NUVARING [Suspect]
     Indication: CONTRACEPTION
     Dosage: 0.12/0.015/24 MG, QM, 1 RING FOR 3 WEEKS ON THEN 1 WEEK OFF
     Route: 067
  2. PEPCID [Concomitant]
     Dosage: UNK

REACTIONS (6)
  - Medical device discomfort [Not Recovered/Not Resolved]
  - Vulvovaginal burning sensation [Not Recovered/Not Resolved]
  - Vulvovaginal burning sensation [Not Recovered/Not Resolved]
  - Paraesthesia [Not Recovered/Not Resolved]
  - Device expulsion [Not Recovered/Not Resolved]
  - Product quality issue [Unknown]
